FAERS Safety Report 12306396 (Version 2)
Quarter: 2016Q2

REPORT INFORMATION
  Report Type: Spontaneous
  Country: ES (occurrence: ES)
  Receive Date: 20160426
  Receipt Date: 20160513
  Transmission Date: 20160815
  Serious: Yes (Hospitalization)
  Sender: FDA-Public Use
  Company Number: ES-PFIZER INC-2016225324

PATIENT
  Age: 87 Year
  Sex: Female

DRUGS (11)
  1. SIMVASTATIN. [Concomitant]
     Active Substance: SIMVASTATIN
     Dosage: 20 MG, 1X/DAY (0-0-1)
  2. DIGOXINA [Concomitant]
     Active Substance: DIGOXIN
     Dosage: 0.25 MG, 1X/DAY (0-1-0) ON ALTERNATE DAYS
  3. LEVOFLOXACIN. [Concomitant]
     Active Substance: LEVOFLOXACIN
     Dosage: UNK
     Dates: start: 20160215
  4. ALDACTONE [Interacting]
     Active Substance: SPIRONOLACTONE
     Indication: HYPERTENSION
     Dosage: 25 MG, 2X/WEEK (ON MONDAYS AND THURSDAYS) (1-0-0)
     Route: 048
     Dates: start: 20130910
  5. OMEPRAZOLE. [Concomitant]
     Active Substance: OMEPRAZOLE
     Dosage: 20 MG, 1X/DAY (1-0-0)
  6. CAPENON HCT [Suspect]
     Active Substance: AMLODIPINE BESYLATE\HYDROCHLOROTHIAZIDE\OLMESARTAN MEDOXOMIL
     Indication: HYPERTENSION
     Dosage: 1 TABLET OF 40 MG 1X/DAY (1-0-0)
     Route: 048
     Dates: start: 20151115, end: 20160218
  7. XARELTO [Concomitant]
     Active Substance: RIVAROXABAN
     Dosage: 20 MG, 1X/DAY (1-0-0)
  8. LOBIVON [Concomitant]
     Active Substance: NEBIVOLOL HYDROCHLORIDE
     Dosage: 5 MG, 1X/DAY (1-0-0)
  9. NOLOTIL /06276702/ [Concomitant]
     Dosage: 1 DF, 2X/DAY (1-0-1)
  10. SERTRALINE HCL [Interacting]
     Active Substance: SERTRALINE HYDROCHLORIDE
     Indication: DEPRESSION
     Dosage: 50 MG, 1X/DAY (1-0-0)
     Route: 048
     Dates: start: 20070711
  11. PARACETAMOL/CODEINE [Concomitant]
     Active Substance: ACETAMINOPHEN\CODEINE PHOSPHATE
     Dosage: 1 DF, 1X/DAY (0-1-0)

REACTIONS (3)
  - Hyponatraemia [Recovering/Resolving]
  - Drug interaction [Recovering/Resolving]
  - Fall [Recovered/Resolved]

NARRATIVE: CASE EVENT DATE: 20160218
